FAERS Safety Report 11176838 (Version 2)
Quarter: 2015Q3

REPORT INFORMATION
  Report Type: Report from Study
  Country: US (occurrence: US)
  Receive Date: 20150610
  Receipt Date: 20150916
  Transmission Date: 20151125
  Serious: Yes (Other)
  Sender: FDA-Public Use
  Company Number: US-BIOGENIDEC-2015BI076007

PATIENT
  Age: 54 Year
  Sex: Male

DRUGS (8)
  1. AMPYRA [Concomitant]
     Active Substance: DALFAMPRIDINE
  2. SINEMET [Concomitant]
     Active Substance: CARBIDOPA\LEVODOPA
  3. CLONAZEPAM. [Concomitant]
     Active Substance: CLONAZEPAM
  4. CRESTOR [Concomitant]
     Active Substance: ROSUVASTATIN CALCIUM
  5. BACLOFEN. [Concomitant]
     Active Substance: BACLOFEN
  6. TYSABRI [Suspect]
     Active Substance: NATALIZUMAB
     Indication: MULTIPLE SCLEROSIS
     Route: 042
     Dates: start: 20110919, end: 20150430
  7. AMITRIPTYLINE [Concomitant]
     Active Substance: AMITRIPTYLINE
  8. FLOMAX [Concomitant]
     Active Substance: TAMSULOSIN HYDROCHLORIDE

REACTIONS (2)
  - Clear cell renal cell carcinoma [Not Recovered/Not Resolved]
  - Liver function test abnormal [Unknown]

NARRATIVE: CASE EVENT DATE: 20150701
